FAERS Safety Report 8507809-3 (Version None)
Quarter: 2012Q3

REPORT INFORMATION
  Report Type: 
  Country: None (occurrence: None)
  Receive Date: 20120713
  Receipt Date: 20120710
  Transmission Date: 20120928
  Serious: Yes (Other)
  Sender: FDA-Public Use
  Company Number: PHHY2012IT016467

PATIENT
  Sex: Female

DRUGS (1)
  1. VALSARTAN [Suspect]
     Indication: HYPERTENSIVE HEART DISEASE
     Dosage: 160 MG, PER DAY
     Route: 048
     Dates: start: 20120108, end: 20120118

REACTIONS (1)
  - HAEMATURIA [None]
